FAERS Safety Report 4437087-6 (Version None)
Quarter: 2004Q3

REPORT INFORMATION
  Report Type: 
  Country: None (occurrence: None)
  Receive Date: 20040827
  Receipt Date: 20040814
  Transmission Date: 20050211
  Serious: Yes (Hospitalization, Other)
  Sender: FDA-Public Use
  Company Number: 2004051909

PATIENT
  Age: 51 Year
  Sex: Female

DRUGS (3)
  1. GEODON [Suspect]
     Indication: HALLUCINATION
     Dosage: (1 IN 1 D), ORAL
     Route: 048
     Dates: start: 20040729, end: 20040802
  2. GEODON [Suspect]
     Indication: PARANOIA
     Dosage: (1 IN 1 D), ORAL
     Route: 048
     Dates: start: 20040729, end: 20040802
  3. MIRTAZAPINE [Concomitant]

REACTIONS (8)
  - BLOOD POTASSIUM DECREASED [None]
  - BLOOD PRESSURE SYSTOLIC INCREASED [None]
  - BLOOD SODIUM INCREASED [None]
  - BODY TEMPERATURE INCREASED [None]
  - CATATONIA [None]
  - HEART RATE INCREASED [None]
  - MUSCLE RIGIDITY [None]
  - NEUROLEPTIC MALIGNANT SYNDROME [None]
